FAERS Safety Report 11358863 (Version 1)
Quarter: 2015Q3

REPORT INFORMATION
  Report Type: Report from Study
  Country: TN (occurrence: TN)
  Receive Date: 20150807
  Receipt Date: 20150807
  Transmission Date: 20151125
  Serious: Yes (Hospitalization)
  Sender: FDA-Public Use
  Company Number: TN-SA-SLSD-1000097

PATIENT
  Age: 24 Year
  Sex: Female
  Weight: 61.8 kg

DRUGS (6)
  1. ELIGLUSTAT. [Suspect]
     Active Substance: ELIGLUSTAT
     Indication: GAUCHER^S DISEASE
     Dosage: 100 MG, BID
     Route: 048
     Dates: end: 20120611
  2. ELIGLUSTAT. [Suspect]
     Active Substance: ELIGLUSTAT
     Indication: GAUCHER^S DISEASE
     Dosage: 50 MG, BID
     Route: 048
     Dates: start: 20120412
  3. ELIGLUSTAT. [Suspect]
     Active Substance: ELIGLUSTAT
     Indication: GAUCHER^S DISEASE
     Dosage: 100 MG, BID
     Route: 048
     Dates: start: 20110630, end: 201204
  4. ELIGLUSTAT. [Suspect]
     Active Substance: ELIGLUSTAT
     Indication: GAUCHER^S DISEASE
     Dosage: 100 MG, BID
     Route: 048
     Dates: start: 20121004
  5. ELIGLUSTAT. [Suspect]
     Active Substance: ELIGLUSTAT
     Indication: GAUCHER^S DISEASE
     Dosage: 50 MG, BID
     Route: 048
     Dates: start: 20120914, end: 20121003
  6. ELIGLUSTAT. [Suspect]
     Active Substance: ELIGLUSTAT
     Indication: GAUCHER^S DISEASE
     Dosage: 150 MG, BID
     Route: 048
     Dates: start: 20120611, end: 20120905

REACTIONS (2)
  - Atrioventricular block [Recovered/Resolved]
  - Atrioventricular block second degree [Recovered/Resolved]

NARRATIVE: CASE EVENT DATE: 20120823
